FAERS Safety Report 15234624 (Version 2)
Quarter: 2018Q3

REPORT INFORMATION
  Report Type: Spontaneous
  Country: US (occurrence: US)
  Receive Date: 20180803
  Receipt Date: 20180812
  Transmission Date: 20181010
  Serious: No
  Sender: FDA-Public Use
  Company Number: US-JNJFOC-20180707877

PATIENT
  Age: 67 Year
  Sex: Female
  Weight: 57.15 kg

DRUGS (2)
  1. WOMENS ROGAINE UNSCENTED [Suspect]
     Active Substance: MINOXIDIL
     Route: 061
  2. WOMENS ROGAINE UNSCENTED [Suspect]
     Active Substance: MINOXIDIL
     Indication: ALOPECIA
     Dosage: 1/2 CAP PLUS  SOME ON TOP AND SOME CROWNDAILY
     Route: 061
     Dates: start: 201711

REACTIONS (4)
  - Product storage error [Unknown]
  - Alopecia [Not Recovered/Not Resolved]
  - Product physical issue [Unknown]
  - Overdose [Unknown]

NARRATIVE: CASE EVENT DATE: 201711
